FAERS Safety Report 7878824-8 (Version None)
Quarter: 2011Q4

REPORT INFORMATION
  Report Type: 
  Country: None (occurrence: None)
  Receive Date: 20111028
  Receipt Date: 20111018
  Transmission Date: 20120403
  Serious: Yes (Other)
  Sender: FDA-Public Use
  Company Number: 2011AP002429

PATIENT
  Age: 65 Year
  Sex: Male

DRUGS (8)
  1. CODEINE SULFATE [Concomitant]
  2. MOVICOL /01625101/ (POLYETHYL. GLYC. W/POTAS. CHLOR./SOD. BICARB.) [Concomitant]
  3. ACETAMINOPHEN [Concomitant]
  4. CITALOPRAM HYDROBROMIDE [Concomitant]
  5. GABAPENTIN [Concomitant]
  6. OMEPRAZOLE [Suspect]
     Indication: DYSPEPSIA
     Dosage: 20 MG;PO;QD ; 20 MG;PO;QD
     Route: 048
     Dates: start: 20090801, end: 20110810
  7. FYBOGEL (PLANTAGO OVATA [Concomitant]
  8. NORTRIPTYLINE HCL [Concomitant]

REACTIONS (2)
  - VITAMIN B12 DECREASED [None]
  - BLOOD COUNT ABNORMAL [None]
